FAERS Safety Report 5862781-X (Version None)
Quarter: 2008Q3

REPORT INFORMATION
  Report Type: 
  Country: None (occurrence: None)
  Receive Date: 20080828
  Receipt Date: 20080822
  Transmission Date: 20090109
  Serious: Yes (Hospitalization)
  Sender: FDA-Public Use
  Company Number: US-AMGEN-US193038

PATIENT
  Sex: Female

DRUGS (13)
  1. ETANERCEPT [Suspect]
     Indication: HEPATITIS ALCOHOLIC
     Route: 058
     Dates: start: 20060602, end: 20060608
  2. PROTONIX [Concomitant]
  3. OXYCODONE HCL [Concomitant]
     Route: 048
  4. NICOTINE TRANSDERMAL [Concomitant]
     Route: 062
  5. FOLTX [Concomitant]
     Route: 048
  6. THIAMINE HCL [Concomitant]
     Route: 048
  7. SENOKOT [Concomitant]
     Route: 048
  8. VITAMIN K TAB [Concomitant]
     Route: 048
  9. LACTULOSE [Concomitant]
     Route: 048
  10. TYLENOL (CAPLET) [Concomitant]
     Route: 048
  11. LASIX [Concomitant]
     Route: 048
  12. SPIRONOLACTONE [Concomitant]
     Route: 048
  13. BACTRIM DS [Concomitant]

REACTIONS (3)
  - ABDOMINAL PAIN [None]
  - ASCITES [None]
  - ESCHERICHIA INFECTION [None]
